FAERS Safety Report 15517989 (Version 1)
Quarter: 2018Q4

REPORT INFORMATION
  Report Type: Spontaneous
  Country: US (occurrence: US)
  Receive Date: 20181017
  Receipt Date: 20181017
  Transmission Date: 20190205
  Serious: Yes (Disabling)
  Sender: FDA-Public Use
  Company Number: US-NOVOPROD-626221

PATIENT
  Sex: Female

DRUGS (1)
  1. NOVOLOG [Suspect]
     Active Substance: INSULIN ASPART
     Indication: TYPE 1 DIABETES MELLITUS
     Dosage: UNK
     Route: 065

REACTIONS (3)
  - Myocardial infarction [Recovered/Resolved]
  - Cerebrovascular accident [Not Recovered/Not Resolved]
  - Cervix carcinoma [Unknown]

NARRATIVE: CASE EVENT DATE: 2003
